FAERS Safety Report 8135563-6 (Version None)
Quarter: 2012Q1

REPORT INFORMATION
  Report Type: 
  Country: None (occurrence: None)
  Receive Date: 20120214
  Receipt Date: 20110902
  Transmission Date: 20120608
  Serious: Yes (Other)
  Sender: FDA-Public Use
  Company Number: PHEH2011US03303

PATIENT
  Age: 32 Year
  Sex: Female

DRUGS (3)
  1. TRILEPTAL [Suspect]
     Indication: EPILEPSY
     Dosage: 900 MG, UNK
     Dates: start: 20081022, end: 20081215
  2. TRILEPTAL [Suspect]
     Dosage: 1050 MG, UNK
     Dates: start: 20081215, end: 20090406
  3. TRILEPTAL [Suspect]
     Dosage: 2700 MG, UNK
     Dates: start: 20090406, end: 20090626

REACTIONS (4)
  - MATERNAL EXPOSURE DURING PREGNANCY [None]
  - CAESAREAN SECTION [None]
  - PREMATURE DELIVERY [None]
  - PRE-ECLAMPSIA [None]
